FAERS Safety Report 7229550-X (Version None)
Quarter: 2011Q1

REPORT INFORMATION
  Report Type: 
  Country: None (occurrence: None)
  Receive Date: 20110117
  Receipt Date: 20100524
  Transmission Date: 20110831
  Serious: No
  Sender: FDA-Public Use
  Company Number: US-TYCO HEALTHCARE/MALLINCKRODT-T201001330

PATIENT

DRUGS (4)
  1. HYDROCHLOROTHIAZIDE [Concomitant]
  2. MORPHINE [Concomitant]
     Route: 042
  3. ASPIRIN [Concomitant]
  4. OPTIRAY 350 [Suspect]
     Dosage: UNK UNK, SINGLE
     Route: 042
     Dates: start: 20100524, end: 20100524

REACTIONS (6)
  - DRUG ADMINISTRATION ERROR [None]
  - MUSCULOSKELETAL STIFFNESS [None]
  - INJECTION SITE SWELLING [None]
  - INJECTION SITE PAIN [None]
  - INJECTION SITE ERYTHEMA [None]
  - INJECTION SITE EXTRAVASATION [None]
